FAERS Safety Report 8869888 (Version 1)
Quarter: 2012Q4

REPORT INFORMATION
  Report Type: 
  Country: US (occurrence: US)
  Receive Date: 20121026
  Receipt Date: 20121026
  Transmission Date: 20130627
  Serious: No
  Sender: FDA-Public Use
  Company Number: US-AMGEN-USASP2012045874

PATIENT
  Age: 57 Year
  Sex: Male

DRUGS (5)
  1. ENBREL [Suspect]
     Indication: PRODUCT USED FOR UNKNOWN INDICATION
     Dosage: 50 mg, qwk
     Route: 058
  2. PLAQUENIL [Concomitant]
     Dosage: 200 mg, UNK
  3. VITAMIN D /00107901/ [Concomitant]
     Dosage: 1000 unit, UNK
  4. FOLIC ACID [Concomitant]
  5. METHOTREXATE [Concomitant]
     Dosage: 20 mg, UNK

REACTIONS (1)
  - Injection site haematoma [Recovered/Resolved]
